FAERS Safety Report 19960914 (Version 2)
Quarter: 2021Q4

REPORT INFORMATION
  Report Type: Spontaneous
  Country: RU (occurrence: RU)
  Receive Date: 20211016
  Receipt Date: 20211028
  Transmission Date: 20220303
  Serious: Yes (Other)
  Sender: FDA-Public Use
  Company Number: NVSC2021RU230367

PATIENT
  Sex: Female

DRUGS (6)
  1. MIDOSTAURIN [Suspect]
     Active Substance: MIDOSTAURIN
     Indication: Systemic mastocytosis
     Dosage: 25 MG, BID
     Route: 065
     Dates: start: 20210812
  2. MIDOSTAURIN [Suspect]
     Active Substance: MIDOSTAURIN
     Dosage: 50 MG, BID
     Route: 065
     Dates: start: 20210826
  3. ZOLEDRONIC ACID [Suspect]
     Active Substance: ZOLEDRONIC ACID
     Indication: Product used for unknown indication
     Dosage: UNK
     Route: 065
     Dates: start: 2014, end: 2017
  4. CHLOROPYRAMINE HYDROCHLORIDE [Concomitant]
     Active Substance: CHLOROPYRAMINE HYDROCHLORIDE
     Indication: Product used for unknown indication
     Route: 065
  5. LORATADINE [Concomitant]
     Active Substance: LORATADINE
     Indication: Product used for unknown indication
     Dosage: UNK
     Route: 065
  6. ALLOPURINOL [Concomitant]
     Active Substance: ALLOPURINOL
     Indication: Product used for unknown indication
     Dosage: 300 MG, QD
     Route: 065

REACTIONS (23)
  - Cytopenia [Unknown]
  - Ascites [Unknown]
  - Portal hypertension [Unknown]
  - Systemic mastocytosis [Unknown]
  - Leukaemia [Unknown]
  - Anaphylactic reaction [Unknown]
  - Loss of consciousness [Unknown]
  - Diarrhoea [Unknown]
  - Nausea [Unknown]
  - Asthenia [Unknown]
  - Product administration error [Unknown]
  - Rash [Unknown]
  - Pruritus [Unknown]
  - Blood pressure decreased [Unknown]
  - Splenomegaly [Unknown]
  - Hepatomegaly [Unknown]
  - Malabsorption [Unknown]
  - Weight decreased [Unknown]
  - Hypoalbuminaemia [Unknown]
  - Hypersplenism [Unknown]
  - Lymphadenopathy [Unknown]
  - Drug ineffective [Unknown]
  - Hepatic function abnormal [Unknown]
